FAERS Safety Report 5848404-4 (Version None)
Quarter: 2008Q3

REPORT INFORMATION
  Report Type: 
  Country: None (occurrence: None)
  Receive Date: 20080815
  Receipt Date: 20080815
  Transmission Date: 20090109
  Serious: Yes (Life-Threatening, Other)
  Sender: FDA-Public Use
  Company Number: None

PATIENT
  Age: 8 Year
  Sex: Female
  Weight: 29.4838 kg

DRUGS (1)
  1. STRATTERA [Suspect]
     Indication: ATTENTION DEFICIT/HYPERACTIVITY DISORDER
     Dosage: 25MG NIGHTLY
     Dates: start: 20071201, end: 20080701

REACTIONS (12)
  - ANXIETY [None]
  - DEPRESSION [None]
  - EYE DISORDER [None]
  - FATIGUE [None]
  - FEAR [None]
  - HALLUCINATION, VISUAL [None]
  - HOMICIDAL IDEATION [None]
  - INSOMNIA [None]
  - NIGHTMARE [None]
  - SLEEP TALKING [None]
  - SOMNAMBULISM [None]
  - SUICIDAL IDEATION [None]
